FAERS Safety Report 7287566-1 (Version None)
Quarter: 2011Q1

REPORT INFORMATION
  Report Type: 
  Country: None (occurrence: None)
  Receive Date: 20110208
  Receipt Date: 20110208
  Transmission Date: 20110831
  Serious: Yes (Other)
  Sender: FDA-Public Use
  Company Number: None

PATIENT

DRUGS (1)
  1. PRISTIQ [Suspect]
     Indication: GENERALISED ANXIETY DISORDER
     Dosage: 1 50MG TABLET DAILY PO
     Route: 048
     Dates: start: 20080105, end: 20110204

REACTIONS (3)
  - MALABSORPTION [None]
  - PRODUCT QUALITY ISSUE [None]
  - WITHDRAWAL SYNDROME [None]
